FAERS Safety Report 5935817-5 (Version None)
Quarter: 2008Q4

REPORT INFORMATION
  Report Type: 
  Country: None (occurrence: None)
  Receive Date: 20081030
  Receipt Date: 20081021
  Transmission Date: 20090506
  Serious: Yes (Hospitalization, Other)
  Sender: FDA-Public Use
  Company Number: PHHY2008US06850

PATIENT
  Sex: Male
  Weight: 62.5 kg

DRUGS (8)
  1. EXJADE [Suspect]
     Indication: CHRONIC LYMPHOCYTIC LEUKAEMIA
     Dosage: 1425 MG, QD
     Route: 048
     Dates: start: 20070823, end: 20080313
  2. EXJADE [Suspect]
     Dosage: 20 MG/KG, QD
     Dates: start: 20080321
  3. DIOVAN [Concomitant]
     Dosage: 80 MG, QD
     Route: 048
  4. TOPROL-XL [Concomitant]
     Dosage: 50 MG, QD
     Route: 048
  5. IMDUR [Concomitant]
     Dosage: UNK
     Route: 048
  6. PREVACID [Concomitant]
     Dosage: UNK
     Route: 048
  7. IMMUNE GLOBULIN NOS [Concomitant]
     Dosage: UNK
     Route: 042
  8. BLOOD TRANSFUSION [Concomitant]
     Dosage: UNK

REACTIONS (4)
  - ASTHENIA [None]
  - DIARRHOEA [None]
  - LETHARGY [None]
  - MYALGIA [None]
